FAERS Safety Report 21792332 (Version 1)
Quarter: 2022Q4

REPORT INFORMATION
  Report Type: Spontaneous
  Country: GB (occurrence: None)
  Receive Date: 20221229
  Receipt Date: 20221229
  Transmission Date: 20230112
  Serious: Yes (Other)
  Sender: FDA-Public Use
  Company Number: GB-002147023-NVSC2022GB294568

PATIENT
  Sex: Female

DRUGS (1)
  1. XOLAIR [Suspect]
     Active Substance: OMALIZUMAB
     Indication: Angioedema
     Dosage: 225 MG (150 MG AND 75 MG SIMULTANEOUSLY) ONCE EVERY 4 WEEKS
     Route: 065

REACTIONS (4)
  - Anaphylactic reaction [Unknown]
  - Swelling [Unknown]
  - Vision blurred [Unknown]
  - Off label use [Unknown]
